FAERS Safety Report 17957415 (Version 1)
Quarter: 2020Q2

REPORT INFORMATION
  Report Type: Spontaneous
  Country: CN (occurrence: CN)
  Receive Date: 20200629
  Receipt Date: 20200629
  Transmission Date: 20200714
  Serious: Yes (Life-Threatening, Other)
  Sender: FDA-Public Use
  Company Number: CN-PFIZER INC-2020246851

PATIENT
  Age: 7 Year
  Sex: Male
  Weight: 21 kg

DRUGS (6)
  1. SODIUM CHLORIDE. [Concomitant]
     Active Substance: SODIUM CHLORIDE
     Dosage: 250 ML, 1X/DAY
     Route: 041
     Dates: start: 20200326, end: 20200327
  2. SODIUM CHLORIDE. [Concomitant]
     Active Substance: SODIUM CHLORIDE
     Dosage: 100 ML, 1X/DAY
     Route: 041
     Dates: start: 20200326, end: 20200330
  3. CAMPTO [Suspect]
     Active Substance: IRINOTECAN
     Indication: NEUROBLASTOMA
     Dosage: 40 MG, 1X/DAY
     Route: 041
     Dates: start: 20200326, end: 20200330
  4. SODIUM CHLORIDE. [Concomitant]
     Active Substance: SODIUM CHLORIDE
     Indication: VEHICLE SOLUTION USE
     Dosage: 20 ML, 1X/DAY
     Route: 040
     Dates: start: 20200326, end: 20200326
  5. ENDOXAN [CYCLOPHOSPHAMIDE] [Suspect]
     Active Substance: CYCLOPHOSPHAMIDE
     Indication: NEUROBLASTOMA
     Dosage: 0.77 G, 1X/DAY
     Route: 041
     Dates: start: 20200326, end: 20200327
  6. XI AI KE [Suspect]
     Active Substance: VINDESINE SULFATE
     Indication: NEUROBLASTOMA
     Dosage: 3.5 MG, 1X/DAY
     Route: 040
     Dates: start: 20200326, end: 20200326

REACTIONS (3)
  - Off label use [Unknown]
  - Product use in unapproved indication [Unknown]
  - Bone marrow failure [Recovering/Resolving]

NARRATIVE: CASE EVENT DATE: 20200326
